FAERS Safety Report 25028318 (Version 9)
Quarter: 2025Q4

REPORT INFORMATION
  Report Type: Spontaneous
  Country: US (occurrence: US)
  Receive Date: 20250301
  Receipt Date: 20251203
  Transmission Date: 20260118
  Serious: No
  Sender: SANOFI AVENTIS
  Company Number: US-SA-2025SA060251

PATIENT
  Age: 47 Year
  Sex: Male

DRUGS (4)
  1. ALPROLIX [Suspect]
     Active Substance: EFTRENONACOG ALFA
     Indication: Factor IX deficiency
     Dosage: 8500 IU ((8075-8925), QOW (PROPHYLACTICALLY)
     Route: 042
     Dates: start: 202107
  2. ALPROLIX [Suspect]
     Active Substance: EFTRENONACOG ALFA
     Indication: Factor IX deficiency
     Dosage: 8500 IU ((8075-8925), QOW (PROPHYLACTICALLY)
     Route: 042
     Dates: start: 202107
  3. ALPROLIX [Suspect]
     Active Substance: EFTRENONACOG ALFA
     Indication: Haemorrhage prophylaxis
     Dosage: 8500 (8075-8925) IU, PRN
     Route: 042
     Dates: start: 202107
  4. ALPROLIX [Suspect]
     Active Substance: EFTRENONACOG ALFA
     Indication: Haemorrhage prophylaxis
     Dosage: 8500 (8075-8925) IU, PRN
     Route: 042
     Dates: start: 202107

REACTIONS (1)
  - Haemorrhage [Recovered/Resolved]

NARRATIVE: CASE EVENT DATE: 20250221
